FAERS Safety Report 7526183-2 (Version None)
Quarter: 2011Q2

REPORT INFORMATION
  Report Type: 
  Country: None (occurrence: None)
  Receive Date: 20110606
  Receipt Date: 20100715
  Transmission Date: 20111010
  Serious: No
  Sender: FDA-Public Use
  Company Number: US-BRISTOL-MYERS SQUIBB COMPANY-15204571

PATIENT
  Age: 33 Year
  Sex: Male

DRUGS (3)
  1. EMTRICITABINE AND TENOFOVIR DISOPROXIL FUMARATE [Concomitant]
  2. RALTEGRAVIR [Suspect]
     Dosage: RALTEGRAVIR POTASSIUM TABS
     Route: 048
  3. EFAVIRENZ [Suspect]
     Route: 048

REACTIONS (3)
  - APHTHOUS STOMATITIS [None]
  - NIGHT SWEATS [None]
  - HYPERHIDROSIS [None]
